FAERS Safety Report 8243285-6 (Version None)
Quarter: 2012Q1

REPORT INFORMATION
  Report Type: 
  Country: None (occurrence: None)
  Receive Date: 20120314
  Receipt Date: 20110118
  Transmission Date: 20120608
  Serious: Yes (Hospitalization)
  Sender: FDA-Public Use
  Company Number: PHHY2011US04110

PATIENT
  Sex: Male

DRUGS (2)
  1. FANAPT [Suspect]
     Dosage: 8 MG, BID, ORAL
     Route: 048
  2. DEPAKOTE [Concomitant]

REACTIONS (1)
  - CONVULSION [None]
